FAERS Safety Report 17803603 (Version 1)
Quarter: 2020Q2

REPORT INFORMATION
  Report Type: Spontaneous
  Country: US (occurrence: US)
  Receive Date: 20200519
  Receipt Date: 20200519
  Transmission Date: 20200714
  Serious: Yes (Death, Disabling)
  Sender: FDA-Public Use
  Company Number: None

PATIENT
  Age: 63 Year
  Sex: Female
  Weight: 72 kg

DRUGS (1)
  1. KEYTRUDA [Suspect]
     Active Substance: PEMBROLIZUMAB
     Indication: LUNG NEOPLASM MALIGNANT
     Dosage: ?          OTHER FREQUENCY:INFUSION Q 3 WEEKS;?
     Route: 042
     Dates: start: 20190919, end: 20191030

REACTIONS (6)
  - Autoimmune arthritis [None]
  - Blood thyroid stimulating hormone abnormal [None]
  - Gait disturbance [None]
  - Myalgia [None]
  - Loss of personal independence in daily activities [None]
  - General physical health deterioration [None]

NARRATIVE: CASE EVENT DATE: 20191119
